FAERS Safety Report 5275843-5 (Version None)
Quarter: 2007Q1

REPORT INFORMATION
  Report Type: 
  Country: None (occurrence: None)
  Receive Date: 20070326
  Receipt Date: 20070320
  Transmission Date: 20070707
  Serious: Yes (Other)
  Sender: FDA-Public Use
  Company Number: US-JNJFOC-20070304731

PATIENT
  Age: 6 Decade
  Sex: Male

DRUGS (2)
  1. RAZADYNE [Suspect]
     Indication: DEMENTIA
     Route: 048
  2. NAMENDA [Concomitant]

REACTIONS (1)
  - VENTRICULAR EXTRASYSTOLES [None]
